FAERS Safety Report 16952680 (Version 1)
Quarter: 2019Q4

REPORT INFORMATION
  Report Type: Spontaneous
  Country: US (occurrence: US)
  Receive Date: 20191023
  Receipt Date: 20191023
  Transmission Date: 20200122
  Serious: No
  Sender: FDA-Public Use
  Company Number: US-VIFOR (INTERNATIONAL) INC.-VIT-2019-09458

PATIENT
  Age: 84 Year
  Sex: Female

DRUGS (7)
  1. VELTASSA [Suspect]
     Active Substance: PATIROMER
     Indication: HYPERKALAEMIA
     Route: 048
     Dates: start: 20190823
  2. CALCITRIOL. [Concomitant]
     Active Substance: CALCITRIOL
  3. ATORVASTATIN [Concomitant]
     Active Substance: ATORVASTATIN
  4. LEVOTHYROXINE. [Concomitant]
     Active Substance: LEVOTHYROXINE
  5. HUMALOG [Concomitant]
     Active Substance: INSULIN LISPRO
  6. HYDRALAZINE [Concomitant]
     Active Substance: HYDRALAZINE HYDROCHLORIDE
  7. FUROSEMIDE. [Concomitant]
     Active Substance: FUROSEMIDE

REACTIONS (4)
  - Product dose omission [Unknown]
  - Fall [Unknown]
  - Diarrhoea [Unknown]
  - Foot fracture [Unknown]

NARRATIVE: CASE EVENT DATE: 2019
